FAERS Safety Report 8828184 (Version 1)
Quarter: 2012Q4

REPORT INFORMATION
  Report Type: 
  Country: JP (occurrence: JP)
  Receive Date: 20121005
  Receipt Date: 20121005
  Transmission Date: 20130627
  Serious: Yes (Other)
  Sender: FDA-Public Use
  Company Number: JP-PFIZER INC-2012245638

PATIENT
  Sex: Male

DRUGS (2)
  1. LYRICA [Suspect]
     Indication: HYPOAESTHESIA
     Dosage: UNK
     Route: 048
  2. LYRICA [Suspect]
     Indication: BURNING SENSATION

REACTIONS (5)
  - Blood pressure increased [Unknown]
  - Burnout syndrome [Unknown]
  - Tinnitus [Unknown]
  - Insomnia [Unknown]
  - Ear pain [Unknown]
